FAERS Safety Report 19261418 (Version 1)
Quarter: 2021Q2

REPORT INFORMATION
  Report Type: Spontaneous
  Country: US (occurrence: US)
  Receive Date: 20210515
  Receipt Date: 20210515
  Transmission Date: 20210717
  Serious: Yes (Hospitalization)
  Sender: FDA-Public Use
  Company Number: US-TEVA-2021-US-1910796

PATIENT
  Sex: Female

DRUGS (3)
  1. GLIBENCLAMIDE TEVA [Suspect]
     Active Substance: GLYBURIDE
     Route: 065
  2. METFORMIN HERITAGE [Suspect]
     Active Substance: METFORMIN HYDROCHLORIDE
     Indication: TYPE 2 DIABETES MELLITUS
     Dosage: TAKING FOR YEARS
     Route: 065
  3. GLIBENCLAMIDE TEVA [Suspect]
     Active Substance: GLYBURIDE
     Indication: TYPE 2 DIABETES MELLITUS
     Dosage: TAKING FOR YEARS
     Route: 065

REACTIONS (4)
  - Blood pressure increased [Unknown]
  - Blood glucose increased [Unknown]
  - Illness [Unknown]
  - Cellulitis [Unknown]

NARRATIVE: CASE EVENT DATE: 202104
